FAERS Safety Report 7421805-9 (Version None)
Quarter: 2011Q2

REPORT INFORMATION
  Report Type: 
  Country: None (occurrence: None)
  Receive Date: 20110418
  Receipt Date: 20110411
  Transmission Date: 20111010
  Serious: Yes (Hospitalization, Other)
  Sender: FDA-Public Use
  Company Number: US-US-EMD SERONO, INC.-7053559

PATIENT
  Sex: Female
  Weight: 57 kg

DRUGS (3)
  1. LEXAPRO [Concomitant]
  2. BACLOFEN [Concomitant]
  3. REBIF [Suspect]
     Indication: MULTIPLE SCLEROSIS
     Route: 058
     Dates: start: 20030811

REACTIONS (7)
  - INJECTION SITE ERYTHEMA [None]
  - CORONARY ARTERY OCCLUSION [None]
  - BLOOD CHOLESTEROL ABNORMAL [None]
  - INTRACARDIAC THROMBUS [None]
  - PERONEAL NERVE PALSY [None]
  - INJECTION SITE SCAR [None]
  - INJECTION SITE PAIN [None]
